FAERS Safety Report 13069543 (Version 2)
Quarter: 2017Q1

REPORT INFORMATION
  Report Type: Report from Study
  Country: US (occurrence: US)
  Receive Date: 20161228
  Receipt Date: 20170131
  Transmission Date: 20170428
  Serious: Yes (Hospitalization, Other)
  Sender: FDA-Public Use
  Company Number: US-GILEAD-2016-0250577

PATIENT
  Age: 56 Year
  Sex: Female

DRUGS (3)
  1. TYVASO [Concomitant]
     Active Substance: TREPROSTINIL
  2. AMBRISENTAN [Suspect]
     Active Substance: AMBRISENTAN
     Indication: PRODUCT USED FOR UNKNOWN INDICATION
     Dosage: 10 MG, QD
     Route: 065
  3. XARELTO [Concomitant]
     Active Substance: RIVAROXABAN

REACTIONS (8)
  - Cardiomegaly [Unknown]
  - Catheterisation cardiac [Unknown]
  - Oxygen saturation decreased [Unknown]
  - Sinus disorder [Unknown]
  - Dizziness [Unknown]
  - Atrial septal defect [Unknown]
  - Dyspnoea exertional [Unknown]
  - Haemoglobin increased [Unknown]
